FAERS Safety Report 14367324 (Version 1)
Quarter: 2018Q1

REPORT INFORMATION
  Report Type: Spontaneous
  Country: US (occurrence: US)
  Receive Date: 20180108
  Receipt Date: 20180108
  Transmission Date: 20180509
  Serious: Yes (Hospitalization)
  Sender: FDA-Public Use
  Company Number: None

PATIENT
  Age: 70 Year
  Sex: Male
  Weight: 115.3 kg

DRUGS (12)
  1. GABAPENTIN. [Concomitant]
     Active Substance: GABAPENTIN
  2. LISINOPRIL. [Concomitant]
     Active Substance: LISINOPRIL
  3. WARFARIN [Suspect]
     Active Substance: WARFARIN
     Indication: EMBOLISM VENOUS
     Dosage: ?          OTHER FREQUENCY:30MG TOTAL/WK;?
     Route: 048
     Dates: start: 20140624, end: 20180108
  4. BACLOFEN. [Concomitant]
     Active Substance: BACLOFEN
  5. CITALOPRAM [Concomitant]
     Active Substance: CITALOPRAM HYDROBROMIDE
  6. MIRALAX [Concomitant]
     Active Substance: POLYETHYLENE GLYCOL 3350
  7. TIZANIDINE. [Concomitant]
     Active Substance: TIZANIDINE
  8. MIRABEGRON [Concomitant]
     Active Substance: MIRABEGRON
  9. GLIMEPIRIDE. [Concomitant]
     Active Substance: GLIMEPIRIDE
  10. CENTRUM SILVER [Concomitant]
     Active Substance: MINERALS\VITAMINS
  11. TEMAZEPAM. [Concomitant]
     Active Substance: TEMAZEPAM
  12. ALLOPURINOL. [Concomitant]
     Active Substance: ALLOPURINOL

REACTIONS (5)
  - Mental status changes [None]
  - Acute kidney injury [None]
  - Hypotension [None]
  - Urinary tract infection [None]
  - Unresponsive to stimuli [None]

NARRATIVE: CASE EVENT DATE: 20171225
